FAERS Safety Report 24227086 (Version 4)
Quarter: 2024Q4

REPORT INFORMATION
  Report Type: Spontaneous
  Country: CA (occurrence: CA)
  Receive Date: 20240820
  Receipt Date: 20241217
  Transmission Date: 20250115
  Serious: Yes (Hospitalization, Other)
  Sender: CELLTRION
  Company Number: CA-PFIZER INC-202400227616

PATIENT

DRUGS (6)
  1. INFLECTRA [Suspect]
     Active Substance: INFLIXIMAB-DYYB
     Indication: Colitis ulcerative
     Dosage: 800 MG, EVERY Q 0,2,6, THEN EVERY 8 WEEKS, WEEKSWEEK 0 AT HOSPITAL
     Route: 042
     Dates: start: 20240730
  2. INFLECTRA [Suspect]
     Active Substance: INFLIXIMAB-DYYB
     Dosage: 800 MG, EVERY 0,2,6, THEN EVERY 8 WEEKS, WEEKSWEEK 0 AT HOSPITAL
     Route: 042
     Dates: start: 20240815
  3. INFLECTRA [Suspect]
     Active Substance: INFLIXIMAB-DYYB
     Dosage: 800 MG, AFTER 6 WEEKS (WEEK 6 INDUCTION) (800 MG, Q 0,2,6, THEN EVERY 8 WEEKSWEEK 0 AT HOSPITAL)
     Route: 042
     Dates: start: 20240926
  4. INFLECTRA [Suspect]
     Active Substance: INFLIXIMAB-DYYB
     Dosage: 800 MG, 6 WEEKS (Q 0,2,6, THEN EVERY 8 WEEKSWEEK 0 AT HOSPITAL)
     Route: 042
     Dates: start: 20241108, end: 20241108
  5. INFLECTRA [Suspect]
     Active Substance: INFLIXIMAB-DYYB
     Dosage: 800 MG, AFTER 4 WEEKS (EVERY 4 WEEKS)
     Route: 042
     Dates: start: 20241205
  6. PREDNISONE [Concomitant]
     Active Substance: PREDNISONE
     Dosage: UNK

REACTIONS (9)
  - Illness [Unknown]
  - Condition aggravated [Recovering/Resolving]
  - Drug ineffective [Unknown]
  - COVID-19 [Unknown]
  - Rash [Unknown]
  - Acne [Unknown]
  - Off label use [Unknown]
  - Intentional product use issue [Unknown]
  - Off label use [Unknown]

NARRATIVE: CASE EVENT DATE: 20240101
